FAERS Safety Report 18964507 (Version 1)
Quarter: 2021Q1

REPORT INFORMATION
  Report Type: Spontaneous
  Country: US (occurrence: US)
  Receive Date: 20210303
  Receipt Date: 20210303
  Transmission Date: 20210420
  Serious: No
  Sender: FDA-Public Use
  Company Number: US-AMNEAL PHARMACEUTICALS-2020-AMRX-03500

PATIENT
  Sex: Male

DRUGS (2)
  1. RYTARY [Suspect]
     Active Substance: CARBIDOPA\LEVODOPA
     Dosage: 1 CAPSULE OF 36.25MG/145MG + 2 CAPSULES OF 61.25MG/245MG, 4X/DAY
     Route: 065
     Dates: start: 202009
  2. RYTARY [Suspect]
     Active Substance: CARBIDOPA\LEVODOPA
     Indication: PARKINSON^S DISEASE
     Dosage: 61.25MG/245MG, 3 CAPSULES, 4X/DAY
     Route: 065
     Dates: start: 202001, end: 2020

REACTIONS (3)
  - Prescribed overdose [Unknown]
  - Product physical issue [Unknown]
  - Product use complaint [Unknown]
